FAERS Safety Report 15712329 (Version 1)
Quarter: 2018Q4

REPORT INFORMATION
  Report Type: Report from Study
  Country: None (occurrence: GB)
  Receive Date: 20181212
  Receipt Date: 20181212
  Transmission Date: 20190205
  Serious: Yes (Other)
  Sender: FDA-Public Use
  Company Number: GB-ABBVIE-18K-167-2583684-00

PATIENT
  Age: 51 Year
  Sex: Female

DRUGS (1)
  1. HUMIRA [Suspect]
     Active Substance: ADALIMUMAB
     Indication: CROHN^S DISEASE
     Route: 058

REACTIONS (7)
  - Malaise [Unknown]
  - Anaesthetic complication [Unknown]
  - Oropharyngeal pain [Unknown]
  - Rhinitis [Unknown]
  - Pharyngitis [Unknown]
  - Ear infection [Unknown]
  - Diagnostic procedure [Unknown]

NARRATIVE: CASE EVENT DATE: 20181205
